FAERS Safety Report 8587175-8 (Version None)
Quarter: 2012Q3

REPORT INFORMATION
  Report Type: 
  Country: None (occurrence: None)
  Receive Date: 20120810
  Receipt Date: 20120111
  Transmission Date: 20120928
  Serious: No
  Sender: FDA-Public Use
  Company Number: US-ASTRAZENECA-2009UW05963

PATIENT
  Age: 50 Year
  Sex: Female

DRUGS (1)
  1. ARIMIDEX [Suspect]
     Indication: BREAST CANCER
     Route: 048
     Dates: start: 20090220

REACTIONS (7)
  - INSOMNIA [None]
  - CONSTIPATION [None]
  - RED BLOOD CELL COUNT DECREASED [None]
  - BLOOD CHOLESTEROL INCREASED [None]
  - ALOPECIA [None]
  - HOT FLUSH [None]
  - OSTEOPENIA [None]
